FAERS Safety Report 9758370 (Version 1)
Quarter: 2013Q4

REPORT INFORMATION
  Report Type: Report from Study
  Country: JP (occurrence: JP)
  Receive Date: 20131216
  Receipt Date: 20131216
  Transmission Date: 20140711
  Serious: Yes (Other)
  Sender: FDA-Public Use
  Company Number: JP-PFIZER INC-2013354274

PATIENT
  Sex: 0

DRUGS (1)
  1. LYRICA [Suspect]
     Indication: PAIN
     Dosage: UNK
     Dates: start: 201303, end: 201304

REACTIONS (2)
  - Gastrointestinal disorder [Unknown]
  - Drug effect incomplete [Unknown]
